FAERS Safety Report 17252431 (Version 1)
Quarter: 2020Q1

REPORT INFORMATION
  Report Type: Spontaneous
  Country: US (occurrence: US)
  Receive Date: 20200108
  Receipt Date: 20200108
  Transmission Date: 20200409
  Serious: Yes (Other)
  Sender: FDA-Public Use
  Company Number: None

PATIENT
  Age: 9 Year
  Sex: Female
  Weight: 33.3 kg

DRUGS (2)
  1. PREDNISOLONE. [Suspect]
     Active Substance: PREDNISOLONE
     Indication: COUGH
     Dosage: ?          QUANTITY:10 ML;?
     Route: 048
     Dates: start: 20200106, end: 20200108
  2. IBUPROFEN. [Concomitant]
     Active Substance: IBUPROFEN

REACTIONS (4)
  - Lip blister [None]
  - Eye pain [None]
  - Lip swelling [None]
  - Oral mucosal blistering [None]

NARRATIVE: CASE EVENT DATE: 20200108
